FAERS Safety Report 4453698-6 (Version None)
Quarter: 2004Q3

REPORT INFORMATION
  Report Type: 
  Country: None (occurrence: None)
  Receive Date: 20040920
  Receipt Date: 20040714
  Transmission Date: 20050211
  Serious: Yes (Other)
  Sender: FDA-Public Use
  Company Number: PHBS2004CA09474

PATIENT
  Age: 63 Year
  Sex: Male

DRUGS (9)
  1. ZOLEDRONATE [Suspect]
     Indication: OSTEOPOROSIS PROPHYLAXIS
     Dosage: 4 MG EVERY 3 MONTHS
     Route: 042
     Dates: start: 20040325
  2. VITAMIN E [Concomitant]
     Dates: start: 19950101
  3. CASODEX [Concomitant]
     Dates: start: 20040228, end: 20040308
  4. LACTULOSE [Concomitant]
     Dates: start: 20040629
  5. ATIVAN [Concomitant]
     Dates: start: 20040629
  6. ANUSOL HC [Concomitant]
     Dates: start: 20040710
  7. CALCIUM [Concomitant]
     Dosage: DAILY
  8. VITAMIN D [Concomitant]
     Dosage: 400 IU DAILY
  9. ZOLADEX [Concomitant]
     Indication: PROSTATE CANCER
     Dosage: 10.8 MG, EVERY 3 MONTHS
     Route: 058

REACTIONS (1)
  - GOUT [None]
